FAERS Safety Report 8150414-1 (Version None)
Quarter: 2012Q1

REPORT INFORMATION
  Report Type: 
  Country: None (occurrence: None)
  Receive Date: 20120220
  Receipt Date: 20120214
  Transmission Date: 20120608
  Serious: Yes (Other)
  Sender: FDA-Public Use
  Company Number: JP-PFIZER INC-2012016087

PATIENT
  Age: 79 Year
  Sex: Male

DRUGS (16)
  1. LYRICA [Suspect]
     Dosage: 75 MG, 2X/DAY
     Route: 048
     Dates: start: 20100803, end: 20100804
  2. LYRICA [Suspect]
     Dosage: 75 MG, 3X/DAY
     Route: 048
     Dates: start: 20100805, end: 20101227
  3. NEUROTROPIN [Concomitant]
     Dosage: 3 ML
     Route: 042
     Dates: start: 20100607
  4. BIO THREE [Concomitant]
     Dosage: 3 TABLETS DAILY
     Route: 048
     Dates: start: 20100716
  5. XYLOCAINE [Concomitant]
     Dosage: 5ML
     Route: 042
     Dates: start: 20100607
  6. AMITRIPTYLINE HCL [Concomitant]
     Dosage: 30 MG DAILY
     Route: 048
     Dates: start: 20100716
  7. FAMOSTAGINE [Concomitant]
     Dosage: 40 MG DAILY
     Route: 048
     Dates: start: 20100716
  8. LYRICA [Suspect]
     Indication: POST HERPETIC NEURALGIA
     Dosage: 75 MG DAILY
     Route: 048
     Dates: start: 20100716, end: 20100719
  9. LYRICA [Suspect]
     Dosage: 150 MG DAILY
     Route: 048
     Dates: start: 20100720, end: 20100726
  10. LYRICA [Suspect]
     Dosage: 75 MG, 1X/DAY
     Route: 048
     Dates: start: 20110419, end: 20110423
  11. NEUROTROPIN [Concomitant]
     Dosage: 16 UNITS DAILY
     Route: 048
     Dates: start: 20100716
  12. ETODOLAC [Concomitant]
     Dosage: 400 MG DAILY
     Route: 048
     Dates: start: 20100716
  13. NEUROTROPIN [Concomitant]
     Dosage: 3 ML
     Route: 008
     Dates: start: 20100609, end: 20110628
  14. XYLOCAINE [Concomitant]
     Dosage: 5ML
     Route: 008
     Dates: start: 20100609, end: 20110628
  15. LYRICA [Suspect]
     Dosage: 75 MG, 3X/DAY
     Route: 048
     Dates: start: 20100727, end: 20100802
  16. LYRICA [Suspect]
     Dosage: 75 MG, 2X/DAY
     Route: 048
     Dates: start: 20101228, end: 20110418

REACTIONS (7)
  - DIZZINESS [None]
  - HYPOAESTHESIA [None]
  - MUSCLE SPASMS [None]
  - WEIGHT INCREASED [None]
  - BLOOD CREATINE PHOSPHOKINASE INCREASED [None]
  - DYSARTHRIA [None]
  - SPINAL OSTEOARTHRITIS [None]
